FAERS Safety Report 16926469 (Version 1)
Quarter: 2019Q4

REPORT INFORMATION
  Report Type: Spontaneous
  Country: US (occurrence: US)
  Receive Date: 20191016
  Receipt Date: 20191016
  Transmission Date: 20200122
  Serious: No
  Sender: FDA-Public Use
  Company Number: US-SA-2019SA281969

PATIENT
  Age: 68 Year
  Sex: Female

DRUGS (1)
  1. XYZAL ALLERGY 24HR [Suspect]
     Active Substance: LEVOCETIRIZINE DIHYDROCHLORIDE
     Indication: SINUS DISORDER
     Dosage: 5 MG, 1X
     Route: 065
     Dates: start: 20191007, end: 20191007

REACTIONS (7)
  - Drug ineffective [Unknown]
  - Sinus disorder [Unknown]
  - Lacrimation increased [Unknown]
  - Condition aggravated [Unknown]
  - Upper-airway cough syndrome [Unknown]
  - Sneezing [Unknown]
  - Rhinorrhoea [Unknown]
